FAERS Safety Report 15614159 (Version 2)
Quarter: 2018Q4

REPORT INFORMATION
  Report Type: Spontaneous
  Country: US (occurrence: US)
  Receive Date: 20181113
  Receipt Date: 20181207
  Transmission Date: 20190205
  Serious: No
  Sender: FDA-Public Use
  Company Number: US-PFIZER INC-2018458977

PATIENT
  Age: 72 Year
  Sex: Male

DRUGS (1)
  1. EUCRISA [Suspect]
     Active Substance: CRISABOROLE
     Indication: PRURITUS
     Dosage: UNK, 2X/DAY(APPLY A THIN LAYER TO AFFECTED AREAS)
     Dates: start: 201803

REACTIONS (1)
  - Drug ineffective for unapproved indication [Unknown]
